FAERS Safety Report 6220844-3 (Version None)
Quarter: 2009Q2

REPORT INFORMATION
  Report Type: 
  Country: None (occurrence: None)
  Receive Date: 20090610
  Receipt Date: 20090529
  Transmission Date: 20091009
  Serious: Yes (Other)
  Sender: FDA-Public Use
  Company Number: JP-PFIZER INC-2009218975

PATIENT
  Age: 62 Year

DRUGS (18)
  1. CHAMPIX [Suspect]
     Indication: SMOKING CESSATION THERAPY
     Dosage: UNK
     Route: 048
     Dates: start: 20090130, end: 20090101
  2. SIGMART [Concomitant]
     Dosage: UNK
     Route: 048
  3. TERNELIN [Concomitant]
     Dosage: UNK
     Route: 048
  4. VASOLAN [Concomitant]
     Dosage: UNK
     Route: 048
  5. GASTER [Concomitant]
     Dosage: UNK
     Route: 048
  6. AMARYL [Concomitant]
     Dosage: UNK
     Route: 048
  7. GASMOTIN [Concomitant]
     Dosage: UNK
     Route: 048
  8. MUCOSTA [Concomitant]
     Dosage: UNK
     Route: 048
  9. ACTOS [Concomitant]
     Dosage: UNK
     Route: 048
  10. ASPIRIN [Concomitant]
     Dosage: UNK
     Route: 048
  11. MAINTATE [Concomitant]
     Dosage: UNK
     Route: 048
  12. LIPITOR [Concomitant]
     Route: 048
  13. LANIRAPID [Concomitant]
     Route: 048
  14. HARNAL [Concomitant]
     Route: 048
  15. ALLOPURINOL [Concomitant]
     Route: 048
  16. MIGSIS [Concomitant]
     Route: 048
  17. WARFARIN POTASSIUM [Concomitant]
     Route: 048
  18. VITAMEDIN CAPSULE [Concomitant]

REACTIONS (1)
  - RETINAL HAEMORRHAGE [None]
